FAERS Safety Report 6628672-1 (Version None)
Quarter: 2010Q1

REPORT INFORMATION
  Report Type: 
  Country: None (occurrence: None)
  Receive Date: 20100311
  Receipt Date: 20100301
  Transmission Date: 20100710
  Serious: Yes (Other)
  Sender: FDA-Public Use
  Company Number: US-PFIZER INC-2010026897

PATIENT
  Sex: Male

DRUGS (6)
  1. GLIPIZIDE [Suspect]
  2. METFORMIN HCL [Suspect]
  3. GLIBENCLAMIDE [Suspect]
  4. SAXAGLIPTIN [Suspect]
     Dosage: 5 MG, UNK
     Dates: start: 20091101
  5. ACTOS [Suspect]
  6. LANTUS [Suspect]

REACTIONS (2)
  - DRUG INEFFECTIVE [None]
  - GLYCOSYLATED HAEMOGLOBIN INCREASED [None]
